FAERS Safety Report 4548085-6 (Version None)
Quarter: 2004Q4

REPORT INFORMATION
  Report Type: 
  Country: None (occurrence: None)
  Receive Date: 20041227
  Receipt Date: 20040923
  Transmission Date: 20050328
  Serious: No
  Sender: FDA-Public Use
  Company Number: 04P-163-0274649-00

PATIENT
  Age: 16 Year
  Sex: Female
  Weight: 56.6996 kg

DRUGS (6)
  1. HUMIRA [Suspect]
     Indication: JUVENILE ARTHRITIS
     Dosage: 40 MG, 1 IN 2 WK, SUBCUTANEOUS
     Route: 058
     Dates: start: 20040316, end: 20040915
  2. METHOTREXATE [Concomitant]
  3. FOLIC ACID [Concomitant]
  4. BUCINDOLOL HYDROCHLORIDE [Concomitant]
  5. CALCIUM GLUCONATE [Concomitant]
  6. INSULIN [Concomitant]

REACTIONS (2)
  - ARTHRALGIA [None]
  - BRONCHITIS [None]
